FAERS Safety Report 4357681-0 (Version None)
Quarter: 2004Q2

REPORT INFORMATION
  Report Type: 
  Country: None (occurrence: None)
  Receive Date: 20040510
  Receipt Date: 20040427
  Transmission Date: 20050107
  Serious: Yes (Other)
  Sender: FDA-Public Use
  Company Number: 2004202470CA

PATIENT
  Age: 50 Year
  Sex: Female
  Weight: 67.6 kg

DRUGS (2)
  1. BEXTRA [Suspect]
     Indication: ARTHRALGIA
     Dosage: 20 MG, QD, ORAL
     Route: 048
     Dates: start: 20040210, end: 20040219
  2. ALESSE [Concomitant]

REACTIONS (6)
  - DYSPNOEA [None]
  - MYALGIA [None]
  - PRURITUS [None]
  - PURPURA [None]
  - SERUM SICKNESS [None]
  - URTICARIA [None]
